FAERS Safety Report 5762527-X (Version None)
Quarter: 2008Q2

REPORT INFORMATION
  Report Type: 
  Country: None (occurrence: None)
  Receive Date: 20080609
  Receipt Date: 20080530
  Transmission Date: 20081010
  Serious: Yes (Other)
  Sender: FDA-Public Use
  Company Number: A0732003A

PATIENT
  Age: 46 Year
  Sex: Male
  Weight: 94.7 kg

DRUGS (13)
  1. LAMIVUDINE [Suspect]
     Indication: HIV INFECTION
     Dosage: 300MG UNKNOWN
     Route: 048
     Dates: start: 20041001
  2. FUZEON [Suspect]
     Indication: HIV INFECTION
     Dosage: 90MG TWICE PER DAY
     Route: 048
     Dates: start: 20070119
  3. RALTEGRAVIR [Suspect]
     Indication: HIV INFECTION
     Dates: start: 20070719
  4. INTELENCE [Suspect]
     Indication: HIV INFECTION
     Dosage: 200MG TWICE PER DAY
     Route: 048
     Dates: start: 20070119
  5. VIREAD [Suspect]
     Indication: HIV INFECTION
     Dosage: 300MG PER DAY
     Route: 048
     Dates: start: 20070119
  6. ACYCLOVIR SODIUM [Concomitant]
  7. FOLIC ACID [Concomitant]
  8. MULTI-VITAMIN [Concomitant]
  9. VITAMIN E [Concomitant]
  10. ZOPICLONE [Concomitant]
  11. VITAMIN D [Concomitant]
  12. UNSPECIFIED MEDICATIONS [Concomitant]
  13. CO-TRIAMTERZIDE [Concomitant]

REACTIONS (3)
  - HEPATIC ENZYME INCREASED [None]
  - HEPATIC STEATOSIS [None]
  - LYMPHADENOPATHY [None]
